FAERS Safety Report 10790788 (Version 2)
Quarter: 2015Q1

REPORT INFORMATION
  Report Type: Report from Study
  Country: US (occurrence: US)
  Receive Date: 20150212
  Receipt Date: 20150303
  Transmission Date: 20150721
  Serious: Yes (Hospitalization, Other)
  Sender: FDA-Public Use
  Company Number: US-ACTELION-A-NJ2015-112534

PATIENT
  Age: 15 Year
  Sex: Male

DRUGS (3)
  1. EXJADE [Concomitant]
     Active Substance: DEFERASIROX
  2. SILDENAFIL. [Concomitant]
     Active Substance: SILDENAFIL
  3. TRACLEER [Suspect]
     Active Substance: BOSENTAN\BOSENTAN MONOHYDRATE
     Indication: PULMONARY ARTERIAL HYPERTENSION
     Dosage: 62.5 MG, BID
     Route: 048
     Dates: start: 20140829

REACTIONS (4)
  - Pain [Recovered/Resolved]
  - Blood bilirubin increased [Unknown]
  - Aspartate aminotransferase increased [Recovered/Resolved]
  - Sickle cell anaemia [Recovered/Resolved]
